FAERS Safety Report 16290138 (Version 1)
Quarter: 2019Q2

REPORT INFORMATION
  Report Type: Spontaneous
  Country: GB (occurrence: GB)
  Receive Date: 20190509
  Receipt Date: 20190509
  Transmission Date: 20190711
  Serious: Yes (Other)
  Sender: FDA-Public Use
  Company Number: GB-GLAXOSMITHKLINE-GB2019082001

PATIENT
  Age: 68 Year
  Sex: Male
  Weight: 101 kg

DRUGS (1)
  1. SUMATRIPTAN. [Suspect]
     Active Substance: SUMATRIPTAN
     Indication: MIGRAINE
     Dosage: 100 MG, QD
     Route: 048
     Dates: start: 20170101, end: 20190318

REACTIONS (1)
  - Drug dependence [Recovered/Resolved]
